FAERS Safety Report 4310682-0 (Version None)
Quarter: 2004Q1

REPORT INFORMATION
  Report Type: 
  Country: None (occurrence: None)
  Receive Date: 20040301
  Receipt Date: 20040113
  Transmission Date: 20041129
  Serious: No
  Sender: FDA-Public Use
  Company Number: WAES 0401USA01037

PATIENT
  Sex: Male

DRUGS (2)
  1. ZETIA [Suspect]
     Indication: BLOOD CHOLESTEROL INCREASED
     Dosage: 10MG/DAILY/PO
  2. LOTENSIN [Concomitant]

REACTIONS (1)
  - BENIGN PROSTATIC HYPERPLASIA [None]
